FAERS Safety Report 8255523-4 (Version None)
Quarter: 2012Q2

REPORT INFORMATION
  Report Type: 
  Country: None (occurrence: None)
  Receive Date: 20120403
  Receipt Date: 20120322
  Transmission Date: 20120825
  Serious: Yes (Hospitalization)
  Sender: FDA-Public Use
  Company Number: FR-PFIZER INC-2012081627

PATIENT
  Age: 77 Year
  Sex: Male

DRUGS (12)
  1. INDAPAMIDE [Concomitant]
  2. FUROSEMIDE [Concomitant]
  3. METFORMIN [Concomitant]
  4. GLICLAZIDE [Concomitant]
  5. ASPIRIN [Concomitant]
  6. MORPHINE SULFATE [Suspect]
     Indication: SCIATICA
     Dosage: 90 MG, 2X/DAY
     Route: 048
     Dates: end: 20120112
  7. ATORVASTATIN [Concomitant]
  8. ZOLPIDEM [Concomitant]
  9. LYRICA [Concomitant]
  10. MORPHINE SULFATE [Suspect]
     Indication: SCIATICA
     Dosage: 30 MG, Q4H
     Route: 048
     Dates: end: 20120112
  11. ATENOLOL [Concomitant]
  12. CLONAZEPAM [Concomitant]

REACTIONS (4)
  - LUNG DISORDER [None]
  - VOMITING [None]
  - RENAL FAILURE [None]
  - SOMNOLENCE [None]
